FAERS Safety Report 5822410-8 (Version None)
Quarter: 2008Q3

REPORT INFORMATION
  Report Type: 
  Country: None (occurrence: None)
  Receive Date: 20080725
  Receipt Date: 20080718
  Transmission Date: 20090109
  Serious: Yes (Death, Life-Threatening)
  Sender: FDA-Public Use
  Company Number: US-ASTRAZENECA-2007UW23319

PATIENT
  Age: 34 Year
  Sex: Female

DRUGS (6)
  1. SEROQUEL [Suspect]
     Route: 048
  2. EFFEXOR [Concomitant]
  3. REMERON [Concomitant]
  4. DOXEPIN HCL [Concomitant]
  5. ALPRAZOLAM [Concomitant]
  6. LEVOTHYROXINE SODIUM [Concomitant]

REACTIONS (2)
  - DEATH [None]
  - SUBSTANCE ABUSE [None]
